FAERS Safety Report 6829585-2 (Version None)
Quarter: 2010Q3

REPORT INFORMATION
  Report Type: 
  Country: None (occurrence: None)
  Receive Date: 20100709
  Receipt Date: 20070418
  Transmission Date: 20110219
  Serious: Yes (Other)
  Sender: FDA-Public Use
  Company Number: US-PFIZER INC-2007013625

PATIENT
  Sex: Female
  Weight: 81.2 kg

DRUGS (11)
  1. CHANTIX [Suspect]
     Indication: SMOKING CESSATION THERAPY
     Dates: start: 20070205, end: 20070219
  2. ALL OTHER THERAPEUTIC PRODUCTS [Interacting]
  3. ANTIPSYCHOTICS [Interacting]
  4. NEXIUM [Concomitant]
  5. SIMETHICONE [Concomitant]
  6. OXYCONTIN [Concomitant]
  7. ROXICODONE [Concomitant]
  8. EFFEXOR XR [Concomitant]
  9. KLONOPIN [Concomitant]
  10. FLEXERIL [Concomitant]
  11. MIRALAX [Concomitant]

REACTIONS (6)
  - CONSTIPATION [None]
  - DRUG INTERACTION [None]
  - HEADACHE [None]
  - MIDDLE INSOMNIA [None]
  - NAUSEA [None]
  - NIGHTMARE [None]
